FAERS Safety Report 8314412-7 (Version None)
Quarter: 2012Q2

REPORT INFORMATION
  Report Type: 
  Country: None (occurrence: None)
  Receive Date: 20120426
  Receipt Date: 20120417
  Transmission Date: 20120825
  Serious: Yes (Hospitalization, Other)
  Sender: FDA-Public Use
  Company Number: US-ASTRAZENECA-2012SE25355

PATIENT
  Age: 44 Year
  Sex: Female

DRUGS (4)
  1. CRESTOR [Suspect]
     Route: 048
  2. SYMBICORT [Suspect]
     Route: 055
  3. NEXIUM [Suspect]
     Route: 048
  4. NEURONTIN [Concomitant]

REACTIONS (6)
  - HIP FRACTURE [None]
  - ROAD TRAFFIC ACCIDENT [None]
  - PERIPHERAL NERVE INJURY [None]
  - NEURALGIA [None]
  - ANKLE FRACTURE [None]
  - CANDIDIASIS [None]
